FAERS Safety Report 16441288 (Version 5)
Quarter: 2022Q2

REPORT INFORMATION
  Report Type: Spontaneous
  Country: US (occurrence: US)
  Receive Date: 20190617
  Receipt Date: 20220613
  Transmission Date: 20220721
  Serious: Yes (Hospitalization, Other)
  Sender: FDA-Public Use
  Company Number: US-PFIZER INC-2019259080

PATIENT
  Age: 77 Year
  Sex: Male
  Weight: 77.098 kg

DRUGS (17)
  1. BOSULIF [Suspect]
     Active Substance: BOSUTINIB MONOHYDRATE
     Indication: Chronic myeloid leukaemia
     Dosage: 400 MG, DAILY
     Route: 048
     Dates: start: 201807
  2. BOSULIF [Suspect]
     Active Substance: BOSUTINIB MONOHYDRATE
     Dosage: 400 MG, DAILY
     Dates: start: 20190605
  3. BOSULIF [Suspect]
     Active Substance: BOSUTINIB MONOHYDRATE
     Dosage: 200 MG, 1X/DAY (400 MG TABLET TAKE 0.5 TABLETS 1X/DAY)
     Route: 048
  4. ALBUTEROL SULFATE [Concomitant]
     Active Substance: ALBUTEROL SULFATE
     Dosage: UNK
  5. AMLODIPINE BESYLATE [Concomitant]
     Active Substance: AMLODIPINE BESYLATE
     Dosage: 5 MG, DAILY
     Route: 048
  6. ASPIRIN [Concomitant]
     Active Substance: ASPIRIN
     Dosage: 81 MG, DAILY
     Route: 048
  7. ATORVASTATIN CALCIUM [Concomitant]
     Active Substance: ATORVASTATIN CALCIUM
     Dosage: 40 MG, DAILY
     Route: 048
  8. BUDESONIDE [Concomitant]
     Active Substance: BUDESONIDE
     Dosage: UNK UNK, 2X/DAY (SUSPENSION INHALATION)
  9. CLOPIDOGREL BISULFATE [Concomitant]
     Active Substance: CLOPIDOGREL BISULFATE
     Dosage: 75 MG, DAILY
     Route: 048
  10. CYCLOBENZAPRINE HYDROCHLORIDE [Concomitant]
     Active Substance: CYCLOBENZAPRINE HYDROCHLORIDE
     Dosage: 10 MG, DAILY
     Route: 048
  11. FAMOTIDINE [Concomitant]
     Active Substance: FAMOTIDINE
     Dosage: UNK
     Route: 048
  12. FINASTERIDE [Concomitant]
     Active Substance: FINASTERIDE
     Dosage: 5 MG, DAILY
     Route: 048
  13. METOPROLOL SUCCINATE [Concomitant]
     Active Substance: METOPROLOL SUCCINATE
     Dosage: 25 MG, DAILY (TAKE 1 TABLET TABLET SR 2 HR ORAL DAILY)
     Route: 048
  14. PROVENTIL HFA [SALBUTAMOL] [Concomitant]
     Dosage: UNK UNK, AS NEEDED
  15. TAMSULOSIN HYDROCHLORIDE [Concomitant]
     Active Substance: TAMSULOSIN HYDROCHLORIDE
     Dosage: 0.4 MG, DAILY
     Route: 048
  16. TYLENOL PM EXTRA STRENGTH [Concomitant]
     Active Substance: ACETAMINOPHEN\DIPHENHYDRAMINE HYDROCHLORIDE
     Dosage: 1 DF, UNK
     Route: 048
  17. ZOFRAN [Concomitant]
     Active Substance: ONDANSETRON HYDROCHLORIDE
     Dosage: 8 MG, AS NEEDED/TAKE 1 TABLET ORAL PRN (AS NEEDED)
     Route: 048

REACTIONS (6)
  - Pneumonia [Recovered/Resolved]
  - Off label use [Unknown]
  - Wrong technique in product usage process [Unknown]
  - Intentional underdose [Unknown]
  - Hypoacusis [Recovered/Resolved]
  - Diarrhoea [Unknown]
